FAERS Safety Report 8014449-1 (Version None)
Quarter: 2011Q4

REPORT INFORMATION
  Report Type: 
  Country: None (occurrence: None)
  Receive Date: 20111229
  Receipt Date: 20111221
  Transmission Date: 20120403
  Serious: Yes (Other)
  Sender: FDA-Public Use
  Company Number: PHHY2011FR111924

PATIENT
  Age: 55 Year
  Sex: Male

DRUGS (3)
  1. DOCETAXEL [Concomitant]
     Indication: HEAD AND NECK CANCER
     Dosage: UNK
  2. CISPLATIN [Concomitant]
     Indication: HEAD AND NECK CANCER
     Dosage: UNK
  3. FLUOROURACIL [Suspect]
     Indication: HEAD AND NECK CANCER
     Dosage: 6150 MG, UNK

REACTIONS (5)
  - NEUROTOXICITY [None]
  - LOSS OF CONSCIOUSNESS [None]
  - CONVULSION [None]
  - SEPSIS [None]
  - NEUTROPENIA [None]
